FAERS Safety Report 5420242-6 (Version None)
Quarter: 2007Q3

REPORT INFORMATION
  Report Type: 
  Country: None (occurrence: None)
  Receive Date: 20070820
  Receipt Date: 20070810
  Transmission Date: 20080115
  Serious: Yes (Hospitalization)
  Sender: FDA-Public Use
  Company Number: TH-GILEAD-2007-0011442

PATIENT
  Age: 26 Year
  Sex: Male
  Weight: 48.85 kg

DRUGS (18)
  1. EMTRICITABINE [Suspect]
     Indication: HIV INFECTION
     Route: 048
     Dates: start: 20070215
  2. EMTRICITABINE [Suspect]
     Route: 048
     Dates: start: 20070119, end: 20070126
  3. DDI-EC [Concomitant]
     Indication: HIV INFECTION
     Route: 048
     Dates: start: 20070215
  4. DDI-EC [Concomitant]
     Route: 048
     Dates: start: 20070119, end: 20070126
  5. ATAZANAVIR SULFATE [Concomitant]
     Indication: HIV INFECTION
     Route: 048
     Dates: start: 20070215
  6. ATAZANAVIR SULFATE [Concomitant]
     Route: 048
     Dates: start: 20070119, end: 20070126
  7. TRIAMCINOLONE [Concomitant]
  8. CLINDAMYCIN HCL [Concomitant]
  9. PRIMAQUINE [Concomitant]
  10. PREDNISOLONE [Concomitant]
  11. VASELINE CREAM [Concomitant]
  12. ACYCLOVIR [Concomitant]
     Indication: MENINGOENCEPHALITIS HERPETIC
     Route: 042
  13. OMEPRAZOLE [Concomitant]
  14. VITAMIN CAP [Concomitant]
  15. FLUCONAZOLE [Concomitant]
  16. BCO [Concomitant]
  17. DAPSONE [Concomitant]
  18. PARACETAMOL [Concomitant]

REACTIONS (3)
  - CEREBRAL INFARCTION [None]
  - DILATATION VENTRICULAR [None]
  - SINUS BRADYCARDIA [None]
